FAERS Safety Report 8602277-5 (Version None)
Quarter: 2012Q2

REPORT INFORMATION
  Report Type: 
  Country: None (occurrence: None)
  Receive Date: 20120423
  Receipt Date: 20090420
  Transmission Date: 20120825
  Serious: Yes (Disabling, Other)
  Sender: FDA-Public Use
  Company Number: PHEH2009US03360

PATIENT
  Age: 49 Year
  Sex: Female
  Weight: 107.6 kg

DRUGS (5)
  1. IBUPROFEN [Concomitant]
  2. MULTIVITAMINS (ASCORBIC ACID, ERGOCALCIFEROL, FOLIC ACID, NICOTINAMIDE [Concomitant]
  3. VITAMIN C AND E (ESCROBIC ACID, TOCOPHEROL) [Concomitant]
  4. FEMARA [Suspect]
     Indication: BREAST CANCER IN SITU
     Dosage: 2.5 MG, QD, ORAL
     Route: 048
     Dates: start: 20071023, end: 20090308
  5. ZOLOFT [Concomitant]

REACTIONS (4)
  - POLYARTHRITIS [None]
  - ARTHRALGIA [None]
  - PAIN [None]
  - BURNING SENSATION [None]
